FAERS Safety Report 13177864 (Version 1)
Quarter: 2017Q1

REPORT INFORMATION
  Report Type: Report from Study
  Country: CO (occurrence: CO)
  Receive Date: 20170201
  Receipt Date: 20170201
  Transmission Date: 20170428
  Serious: Yes (Hospitalization, Other)
  Sender: FDA-Public Use
  Company Number: CO-AMGEN-COLSL2016142397

PATIENT
  Age: 34 Year
  Sex: Male

DRUGS (1)
  1. MIMPARA [Suspect]
     Active Substance: CINACALCET HYDROCHLORIDE
     Indication: HYPERPARATHYROIDISM SECONDARY
     Dosage: 30 MG, QD
     Route: 048
     Dates: start: 20160716

REACTIONS (4)
  - Thrombosis [Recovering/Resolving]
  - Device related infection [Recovering/Resolving]
  - Staphylococcal infection [Unknown]
  - Surgery [Unknown]

NARRATIVE: CASE EVENT DATE: 20161001
